FAERS Safety Report 16730013 (Version 1)
Quarter: 2019Q3

REPORT INFORMATION
  Report Type: Spontaneous
  Country: TR (occurrence: TR)
  Receive Date: 20190822
  Receipt Date: 20190822
  Transmission Date: 20191005
  Serious: Yes (Other)
  Sender: FDA-Public Use
  Company Number: TR-ROCHE-2358479

PATIENT
  Age: 71 Year
  Sex: Male
  Weight: 50 kg

DRUGS (6)
  1. METHOTREXATE. [Concomitant]
     Active Substance: METHOTREXATE
     Dosage: 4 CYCLES
     Route: 065
     Dates: start: 201809, end: 201901
  2. VINCRISTINE SULFATE. [Concomitant]
     Active Substance: VINCRISTINE SULFATE
     Dosage: 6 CYCLES
     Route: 065
     Dates: start: 201704, end: 201801
  3. CYCLOPHOSPHAMIDE. [Concomitant]
     Active Substance: CYCLOPHOSPHAMIDE
     Dosage: 6 CYCLES
     Route: 065
     Dates: start: 201704, end: 201801
  4. DOXORUBICIN HYDROCHLORIDE. [Concomitant]
     Active Substance: DOXORUBICIN HYDROCHLORIDE
     Dosage: 6 CYCLES
     Route: 065
     Dates: start: 201704, end: 201801
  5. EPIXX [Concomitant]
     Active Substance: LEVETIRACETAM
     Dosage: 2X1
     Route: 065
  6. RITUXIMAB. [Suspect]
     Active Substance: RITUXIMAB
     Indication: DIFFUSE LARGE B-CELL LYMPHOMA RECURRENT
     Dosage: 6 CYCLES
     Route: 065
     Dates: start: 201704, end: 201801

REACTIONS (1)
  - Diffuse large B-cell lymphoma recurrent [Unknown]
